FAERS Safety Report 7625690-1 (Version None)
Quarter: 2011Q3

REPORT INFORMATION
  Report Type: 
  Country: None (occurrence: None)
  Receive Date: 20110721
  Receipt Date: 20110308
  Transmission Date: 20111222
  Serious: Yes (Life-Threatening, Hospitalization, Other)
  Sender: FDA-Public Use
  Company Number: JP-BAYER-2011-012363

PATIENT
  Age: 68 Year
  Sex: Male
  Weight: 65 kg

DRUGS (8)
  1. SIGMART [Concomitant]
     Indication: ANGINA PECTORIS
     Dosage: DAILY DOSE 10 MG
     Route: 048
     Dates: start: 19991021
  2. NEXAVAR [Suspect]
     Dosage: DAILY DOSE 400 MG
     Route: 048
     Dates: start: 20110201, end: 20110307
  3. ASPIRIN [Concomitant]
     Dosage: DAILY DOSE 100 MG
     Route: 048
     Dates: start: 20020409
  4. NEXAVAR [Suspect]
     Indication: HEPATIC NEOPLASM MALIGNANT
     Dosage: 400 MG, BID
     Route: 048
     Dates: start: 20101126, end: 20101224
  5. ACTOS [Concomitant]
     Indication: DIABETES MELLITUS
     Dosage: DAILY DOSE 15 MG
     Route: 048
     Dates: start: 20080411
  6. RABEPRAZOLE SODIUM [Concomitant]
     Indication: GASTRIC ULCER
     Dosage: DAILY DOSE 10 MG
     Route: 048
     Dates: start: 20080822
  7. LIVACT [Concomitant]
     Indication: HEPATIC CIRRHOSIS
     Dosage: DAILY DOSE 12.45 G
     Route: 048
     Dates: start: 20100713
  8. URSO 250 [Concomitant]
     Indication: HEPATITIS
     Dosage: DAILY DOSE 300 MG
     Route: 048
     Dates: start: 19991021

REACTIONS (3)
  - FATIGUE [None]
  - HAEMOLYTIC ANAEMIA [None]
  - DIARRHOEA [None]
